FAERS Safety Report 18858370 (Version 1)
Quarter: 2021Q1

REPORT INFORMATION
  Report Type: Spontaneous
  Country: US (occurrence: US)
  Receive Date: 20210208
  Receipt Date: 20210208
  Transmission Date: 20210420
  Serious: Yes (Other)
  Sender: FDA-Public Use
  Company Number: US-PURACAP-US-2021EPCLIT00060

PATIENT
  Age: 37 Year
  Sex: Male

DRUGS (5)
  1. AMLODIPINE [Interacting]
     Active Substance: AMLODIPINE BESYLATE
     Indication: HYPERTENSION
     Route: 065
  2. CARVEDILOL. [Interacting]
     Active Substance: CARVEDILOL
     Indication: HYPERTENSION
     Route: 065
  3. SPIRONOLACTONE. [Interacting]
     Active Substance: SPIRONOLACTONE
     Indication: GLOMERULONEPHRITIS
     Route: 065
  4. LISINOPRIL. [Interacting]
     Active Substance: LISINOPRIL
     Indication: GLOMERULONEPHRITIS
     Route: 065
  5. IBUPROFEN. [Suspect]
     Active Substance: IBUPROFEN
     Indication: HEADACHE
     Route: 065

REACTIONS (2)
  - Focal segmental glomerulosclerosis [Recovered/Resolved]
  - Glomerulonephritis membranous [Recovered/Resolved]
